FAERS Safety Report 21720071 (Version 1)
Quarter: 2022Q4

REPORT INFORMATION
  Report Type: Report from Study
  Country: JP (occurrence: JP)
  Receive Date: 20221213
  Receipt Date: 20221213
  Transmission Date: 20230112
  Serious: Yes (Other)
  Sender: FDA-Public Use
  Company Number: JP-CELLTRION INC.-2022JP020773

PATIENT

DRUGS (19)
  1. INVESTIGATIONAL BIOSIMILARS [Suspect]
     Active Substance: INVESTIGATIONAL BIOSIMILARS
     Indication: HER2 positive gastric cancer
     Dosage: 400 MILLIGRAM, QD; IV DRIP
     Route: 041
     Dates: start: 20201028, end: 20201028
  2. INVESTIGATIONAL BIOSIMILARS [Suspect]
     Active Substance: INVESTIGATIONAL BIOSIMILARS
     Dosage: 300 MILLIGRAM, QD; IV DRIP
     Route: 041
     Dates: start: 20201118, end: 20201118
  3. INVESTIGATIONAL BIOSIMILARS [Suspect]
     Active Substance: INVESTIGATIONAL BIOSIMILARS
     Dosage: 300 MILLIGRAM, QD; IV DRIP
     Route: 041
     Dates: start: 20201209, end: 20201209
  4. INVESTIGATIONAL BIOSIMILARS [Suspect]
     Active Substance: INVESTIGATIONAL BIOSIMILARS
     Dosage: 300 MILLIGRAM, QD; IV DRIP
     Route: 041
     Dates: start: 20210113, end: 20210113
  5. INVESTIGATIONAL BIOSIMILARS [Suspect]
     Active Substance: INVESTIGATIONAL BIOSIMILARS
     Dosage: 300 MILLIGRAM, QD; IV DRIP
     Route: 041
     Dates: start: 20210203, end: 20210203
  6. INVESTIGATIONAL BIOSIMILARS [Suspect]
     Active Substance: INVESTIGATIONAL BIOSIMILARS
     Dosage: 300 MILLIGRAM, QD; IV DRIP
     Route: 041
     Dates: start: 20210414, end: 20210414
  7. INVESTIGATIONAL BIOSIMILARS [Suspect]
     Active Substance: INVESTIGATIONAL BIOSIMILARS
     Dosage: 300 MILLIGRAM, QD; IV DRIP
     Route: 041
     Dates: start: 20210507, end: 20210507
  8. CISPLATIN [Concomitant]
     Active Substance: CISPLATIN
     Indication: HER2 positive gastric cancer
     Dosage: UNK
     Dates: start: 20201028, end: 20210203
  9. CAPECITABINE [Concomitant]
     Active Substance: CAPECITABINE
     Dosage: UNK
     Dates: start: 20201028, end: 20210520
  10. FOSAPREPITANT [Concomitant]
     Active Substance: FOSAPREPITANT
     Dosage: UNK
     Dates: start: 20201028, end: 20210303
  11. ALOXI [Concomitant]
     Active Substance: PALONOSETRON HYDROCHLORIDE
     Dosage: UNK
     Dates: start: 20201028, end: 20210303
  12. DEXAMETHASONE SODIUM PHOSPHATE [Concomitant]
     Active Substance: DEXAMETHASONE SODIUM PHOSPHATE
     Dosage: UNK
     Dates: start: 20201029, end: 20210305
  13. FUROSEMIDE [Concomitant]
     Active Substance: FUROSEMIDE
     Indication: Oedema
     Dosage: UNK
     Dates: start: 20201028, end: 20210305
  14. NEXIUM [Concomitant]
     Active Substance: ESOMEPRAZOLE MAGNESIUM
     Indication: Gastrooesophageal reflux disease
     Dosage: UNK
     Dates: start: 20201028, end: 20210623
  15. MOSAPRIDE CITRATE [Concomitant]
     Active Substance: MOSAPRIDE CITRATE
     Indication: Chronic gastritis
     Dosage: UNK
     Dates: start: 20201028
  16. LYRICA [Concomitant]
     Active Substance: PREGABALIN
     Indication: Trigeminal neuralgia
     Dosage: UNK
     Dates: start: 20201028
  17. GABAPENTIN [Concomitant]
     Active Substance: GABAPENTIN
     Indication: Trigeminal neuralgia
     Dosage: UNK
     Dates: start: 20201028
  18. DIAZEPAM [Concomitant]
     Active Substance: DIAZEPAM
     Indication: Neurosis
     Dosage: UNK
     Dates: start: 20201028
  19. LANSOPRAZOLE [Concomitant]
     Active Substance: LANSOPRAZOLE
     Indication: Gastrooesophageal reflux disease
     Dosage: UNK
     Dates: start: 20210630

REACTIONS (8)
  - Neuropathy peripheral [Not Recovered/Not Resolved]
  - Asteatosis [Recovered/Resolved]
  - Cancer pain [Recovering/Resolving]
  - Dyslipidaemia [Recovering/Resolving]
  - Constipation [Recovering/Resolving]
  - Nausea [Recovering/Resolving]
  - Decreased appetite [Recovering/Resolving]
  - Hypertension [Recovered/Resolved]

NARRATIVE: CASE EVENT DATE: 20201118
